FAERS Safety Report 7412122-1 (Version None)
Quarter: 2011Q2

REPORT INFORMATION
  Report Type: 
  Country: None (occurrence: None)
  Receive Date: 20110413
  Receipt Date: 20110222
  Transmission Date: 20111010
  Serious: Yes (Hospitalization, Other)
  Sender: FDA-Public Use
  Company Number: US-BAYER-2010-002578

PATIENT
  Age: 43 Year
  Sex: Female
  Weight: 126.98 kg

DRUGS (18)
  1. HYDROCHLOROTHIAZIDE [Concomitant]
     Dosage: UNK
     Route: 048
     Dates: start: 20020415
  2. LEVAQUIN [Concomitant]
     Indication: OSTEOMYELITIS
     Dosage: 750 MG, QD
  3. VANCOMYCIN [Concomitant]
     Indication: OSTEOMYELITIS
     Dosage: 1 G, BID
     Route: 042
     Dates: start: 20081003
  4. SYMBICORT [Concomitant]
  5. SINGULAIR [Concomitant]
  6. DIFLUCAN [Concomitant]
     Dosage: UNK
     Route: 048
     Dates: start: 20081007
  7. YAZ [Suspect]
     Indication: PRODUCT USED FOR UNKNOWN INDICATION
     Dosage: UNK
     Dates: start: 20081028, end: 20090228
  8. CEFEPIME [Concomitant]
     Indication: OSTEOMYELITIS
     Dosage: 2 G, BID
     Route: 042
  9. FLAGYL [Concomitant]
     Indication: OSTEOMYELITIS
     Dosage: 500 MG, UNK
     Route: 048
     Dates: start: 20081003
  10. TUSSIONEX [Concomitant]
  11. LASIX [Concomitant]
  12. DIOVAN [Concomitant]
     Dosage: 150 MG, UNK
     Route: 048
     Dates: start: 20020415
  13. LOVENOX [Concomitant]
     Indication: PROPHYLAXIS
     Dosage: UNK
     Route: 058
     Dates: start: 20081003, end: 20081007
  14. METFORMIN [Concomitant]
  15. PROVERA [Concomitant]
     Indication: VAGINAL HAEMORRHAGE
     Dosage: 20 MG, QD
     Dates: start: 20080911, end: 20080921
  16. CIPRO [Concomitant]
  17. BACTRIM [Concomitant]
  18. ZITHROMAX [Concomitant]

REACTIONS (2)
  - DEEP VEIN THROMBOSIS [None]
  - PULMONARY EMBOLISM [None]
